FAERS Safety Report 4598827-9 (Version None)
Quarter: 2005Q1

REPORT INFORMATION
  Report Type: 
  Country: None (occurrence: None)
  Receive Date: 20050301
  Receipt Date: 20041112
  Transmission Date: 20050727
  Serious: Yes (Hospitalization, Other)
  Sender: FDA-Public Use
  Company Number: 2004095700

PATIENT
  Age: 50 Year
  Sex: Female
  Weight: 117.9352 kg

DRUGS (6)
  1. SOLU-MEDROL [Suspect]
     Indication: MYELITIS TRANSVERSE
     Dosage: 1000 MG (1000 MG, OVER 6 DAYS) INTRAVENOUS
     Route: 042
     Dates: start: 20030101, end: 20030101
  2. SOLU-MEDROL [Suspect]
     Indication: MYELITIS TRANSVERSE
     Dosage: 1000 MG (1000 MG, OVER 6 DAYS) INTRAVENOUS
     Route: 042
     Dates: start: 20040928, end: 20040928
  3. PREDNISONE [Concomitant]
  4. GABAPENTIN [Concomitant]
  5. RAMIPRIL [Concomitant]
  6. SERTRALINE HYDROCHLORIDE 9SERTRALINE HYDROCHLORIDE) [Concomitant]

REACTIONS (10)
  - BLOOD CREATINE PHOSPHOKINASE INCREASED [None]
  - BLOOD GLUCOSE INCREASED [None]
  - DIALYSIS [None]
  - FLUID OVERLOAD [None]
  - HEPATIC ENZYME INCREASED [None]
  - HYPERTENSION [None]
  - MYALGIA [None]
  - OVERDOSE [None]
  - RENAL FAILURE [None]
  - VISION BLURRED [None]
